FAERS Safety Report 9698948 (Version 1)
Quarter: 2013Q4

REPORT INFORMATION
  Report Type: Report from Study
  Country: DE (occurrence: DE)
  Receive Date: 20131120
  Receipt Date: 20131120
  Transmission Date: 20140711
  Serious: Yes (Life-Threatening, Hospitalization, Other)
  Sender: FDA-Public Use
  Company Number: PHHO2013DE014762

PATIENT
  Sex: 0

DRUGS (6)
  1. BLINDED ACZ885 [Suspect]
     Indication: CARDIOVASCULAR EVENT PROPHYLAXIS
     Dosage: CODE NOT BROKEN
     Dates: start: 20120625
  2. BLINDED NO TREATMENT RECEIVED [Suspect]
     Indication: CARDIOVASCULAR EVENT PROPHYLAXIS
     Dosage: CODE NOT BROKEN
     Dates: start: 20120625
  3. BLINDED PLACEBO [Suspect]
     Indication: CARDIOVASCULAR EVENT PROPHYLAXIS
     Dosage: CODE NOT BROKEN
     Dates: start: 20120625
  4. PRADAXA [Suspect]
     Dosage: UNK
  5. NADROPARIN CALCIUM [Concomitant]
     Dosage: 0.7 ML, UNK
     Dates: start: 20130909
  6. METOPROLOL [Concomitant]
     Indication: HYPERTENSION
     Dosage: 47.5 L+IGI

REACTIONS (7)
  - Post procedural haemorrhage [Recovered/Resolved]
  - Carotid artery stenosis [Unknown]
  - Shock [Recovered/Resolved]
  - Sepsis [Recovered/Resolved]
  - Peritonitis [Recovered/Resolved]
  - Intestinal gangrene [Not Recovered/Not Resolved]
  - Arteriosclerosis [Unknown]
